FAERS Safety Report 22057801 (Version 1)
Quarter: 2023Q1

REPORT INFORMATION
  Report Type: Spontaneous
  Country: US (occurrence: US)
  Receive Date: 20230303
  Receipt Date: 20230303
  Transmission Date: 20230418
  Serious: No
  Sender: FDA-Public Use
  Company Number: US-ABBVIE-4278682

PATIENT
  Sex: Male

DRUGS (1)
  1. SKYRIZI [Suspect]
     Active Substance: RISANKIZUMAB-RZAA
     Indication: Autoimmune arthritis
     Dosage: STRENGTH: 150 MG
     Route: 058

REACTIONS (3)
  - Drug ineffective [Unknown]
  - Device issue [Not Recovered/Not Resolved]
  - Off label use [Unknown]
